FAERS Safety Report 14072599 (Version 3)
Quarter: 2019Q4

REPORT INFORMATION
  Report Type: Spontaneous
  Country: US (occurrence: US)
  Receive Date: 20171010
  Receipt Date: 20191224
  Transmission Date: 20200122
  Serious: No
  Sender: FDA-Public Use
  Company Number: US-SA-2017SA171623

PATIENT
  Age: 68 Year
  Sex: Male

DRUGS (1)
  1. DUPIXENT [Suspect]
     Active Substance: DUPILUMAB
     Dosage: 300 MG,QOW
     Route: 058
     Dates: start: 20170729

REACTIONS (7)
  - Erythema [Unknown]
  - Condition aggravated [Unknown]
  - Throat irritation [Unknown]
  - Condition aggravated [Recovering/Resolving]
  - Ocular hyperaemia [Unknown]
  - Feeling hot [Recovering/Resolving]
  - Purulent discharge [Recovering/Resolving]

NARRATIVE: CASE EVENT DATE: 201708
